FAERS Safety Report 11080658 (Version 1)
Quarter: 2015Q2

REPORT INFORMATION
  Report Type: Spontaneous
  Country: US (occurrence: None)
  Receive Date: 20150430
  Receipt Date: 20150430
  Transmission Date: 20150821
  Serious: No
  Sender: FDA-Public Use
  Company Number: None

PATIENT
  Age: 26 Year
  Sex: Female

DRUGS (1)
  1. PPD [Suspect]
     Active Substance: TUBERCULIN PURIFIED PROTEIN DERIVATIVE
     Dates: start: 20150203

REACTIONS (3)
  - Rash erythematous [None]
  - Pruritus [None]
  - Wheezing [None]

NARRATIVE: CASE EVENT DATE: 20150203
